FAERS Safety Report 9547097 (Version 2)
Quarter: 2013Q3

REPORT INFORMATION
  Report Type: Report from Study
  Country: US (occurrence: US)
  Receive Date: 20130924
  Receipt Date: 20130929
  Transmission Date: 20140515
  Serious: Yes (Death)
  Sender: FDA-Public Use
  Company Number: PHEH2013US019896

PATIENT
  Age: 2 Year
  Sex: Female

DRUGS (2)
  1. TOBI [Suspect]
     Indication: CYSTIC FIBROSIS
     Dosage: 300 MG, BID
     Dates: start: 20130727
  2. PULMOZYME [Concomitant]
     Dosage: 1 DF, UNK

REACTIONS (2)
  - Condition aggravated [Fatal]
  - Drug administered to patient of inappropriate age [Unknown]
